FAERS Safety Report 7879536 (Version 3)
Quarter: 2021Q1

REPORT INFORMATION
  Report Type: Report from Study
  Country: US (occurrence: US)
  Receive Date: 20110331
  Receipt Date: 20210121
  Transmission Date: 20210420
  Serious: No
  Sender: FDA-Public Use
  Company Number: US-SHIRE-SPV1-2011-00475

PATIENT
  Age: 6 Year
  Sex: Male

DRUGS (44)
  1. ELAPRASE [Suspect]
     Active Substance: IDURSULFASE
     Indication: MUCOPOLYSACCHARIDOSIS II
     Dosage: 24 MG, 1X/WEEK
     Route: 041
     Dates: start: 20061005
  2. MULTIVITAMIN                       /00097801/ [Concomitant]
     Active Substance: VITAMINS
     Indication: SUPPLEMENTATION THERAPY
     Dosage: UNK, UNKNOWN
     Route: 065
     Dates: start: 20080707
  3. SINGULAIR [Concomitant]
     Active Substance: MONTELUKAST SODIUM
     Indication: HYPERSENSITIVITY
     Dosage: UNK, UNKNOWN
     Route: 065
     Dates: start: 20090807, end: 201102
  4. PARACETAMOL [Concomitant]
     Active Substance: ACETAMINOPHEN
     Dosage: UNK
     Route: 048
     Dates: start: 20091108, end: 20100102
  5. PARACETAMOL [Concomitant]
     Active Substance: ACETAMINOPHEN
     Dosage: UNK
     Route: 048
     Dates: start: 20100206, end: 20100206
  6. VITAMINS NOS [Concomitant]
     Active Substance: VITAMINS
     Indication: SUPPLEMENTATION THERAPY
     Dosage: UNK
     Route: 048
     Dates: start: 20080707
  7. ELAPRASE [Suspect]
     Active Substance: IDURSULFASE
     Dosage: 0.65 MILLIGRAM/KILOGRAM
     Route: 042
     Dates: start: 20070423
  8. PARACETAMOL [Concomitant]
     Active Substance: ACETAMINOPHEN
     Dosage: UNK
     Route: 048
     Dates: start: 20090620, end: 20090620
  9. PARACETAMOL [Concomitant]
     Active Substance: ACETAMINOPHEN
     Dosage: UNK
     Route: 048
     Dates: start: 20090705, end: 20090705
  10. ELAPRASE [Suspect]
     Active Substance: IDURSULFASE
     Dosage: 0.56 UNK
     Route: 042
     Dates: start: 20080331
  11. ALBUTEROL                          /00139501/ [Concomitant]
     Active Substance: ALBUTEROL
     Indication: ASTHMA
     Dosage: UNK, UNKNOWN
     Route: 065
     Dates: start: 20090807
  12. BUDESONIDE. [Concomitant]
     Active Substance: BUDESONIDE
     Dosage: UNK
     Route: 055
     Dates: start: 200908
  13. PARACETAMOL [Concomitant]
     Active Substance: ACETAMINOPHEN
     Dosage: UNK
     Route: 048
     Dates: start: 20100310, end: 20100411
  14. PARACETAMOL [Concomitant]
     Active Substance: ACETAMINOPHEN
     Dosage: UNK
     Route: 048
     Dates: start: 20090329, end: 20090403
  15. ELAPRASE [Suspect]
     Active Substance: IDURSULFASE
     Dosage: 0.51 MILLIGRAM/KILOGRAM
     Route: 042
     Dates: start: 20081027
  16. PARACETAMOL [Concomitant]
     Active Substance: ACETAMINOPHEN
     Indication: PREMEDICATION
     Dosage: UNK
     Route: 048
     Dates: start: 20090419, end: 20090614
  17. PARACETAMOL [Concomitant]
     Active Substance: ACETAMINOPHEN
     Dosage: UNK
     Route: 048
     Dates: start: 20061105, end: 20090322
  18. PARACETAMOL [Concomitant]
     Active Substance: ACETAMINOPHEN
     Dosage: UNK
     Route: 048
     Dates: start: 20100130, end: 20100130
  19. DIPHENHYDRAMINE. [Concomitant]
     Active Substance: DIPHENHYDRAMINE
     Indication: PREMEDICATION
     Dosage: UNK
     Route: 042
     Dates: start: 20120520, end: 20120520
  20. MONTELUKAST [Concomitant]
     Active Substance: MONTELUKAST SODIUM
     Indication: ASTHMA
     Dosage: UNK
     Route: 048
     Dates: start: 200908
  21. ELAPRASE [Suspect]
     Active Substance: IDURSULFASE
     Dosage: 0.6 MILLIGRAM/KILOGRAM
     Route: 042
     Dates: start: 20071011
  22. ELAPRASE [Suspect]
     Active Substance: IDURSULFASE
     Dosage: 0.48 MILLIGRAM/KILOGRAM
     Route: 042
     Dates: start: 20090807
  23. ELAPRASE [Suspect]
     Active Substance: IDURSULFASE
     Dosage: 0.45 MILLIGRAM/KILOGRAM
     Route: 042
     Dates: start: 20100819
  24. PARACETAMOL [Concomitant]
     Active Substance: ACETAMINOPHEN
     Dosage: UNK
     Route: 048
     Dates: start: 20090802, end: 20090927
  25. PARACETAMOL [Concomitant]
     Active Substance: ACETAMINOPHEN
     Dosage: UNK
     Route: 048
     Dates: start: 20091025, end: 20091025
  26. ZYRTEC SUMITOMO [Concomitant]
     Indication: SEASONAL ALLERGY
     Dosage: UNK
     Route: 048
     Dates: start: 2014
  27. ALBUTEROL [SALBUTAMOL] [Concomitant]
     Active Substance: ALBUTEROL
     Indication: ASTHMA
     Dosage: UNK
     Route: 055
     Dates: start: 2005
  28. ELAPRASE [Suspect]
     Active Substance: IDURSULFASE
     Dosage: 0.53 MILLIGRAM/KILOGRAM
     Route: 042
     Dates: start: 20061005
  29. ELAPRASE [Suspect]
     Active Substance: IDURSULFASE
     Dosage: 0.53 MILLIGRAM/KILOGRAM
     Route: 042
     Dates: start: 20081222
  30. SALBUTAMOL [Concomitant]
     Active Substance: ALBUTEROL
     Indication: RESPIRATORY DISORDER
     Dosage: UNK
     Route: 055
     Dates: start: 20090807
  31. PREDNISOLONE. [Concomitant]
     Active Substance: PREDNISOLONE
     Dosage: UNK
     Route: 048
     Dates: start: 20090301, end: 20090306
  32. ELAPRASE [Suspect]
     Active Substance: IDURSULFASE
     Dosage: 0.5 MILLIGRAM/KILOGRAM
     Route: 042
     Dates: start: 20100926
  33. BUDESONIDE. [Concomitant]
     Active Substance: BUDESONIDE
     Indication: ASTHMA
     Dosage: UNK, UNKNOWN
     Route: 065
     Dates: start: 20090807
  34. PARACETAMOL [Concomitant]
     Active Substance: ACETAMINOPHEN
     Dosage: UNK
     Route: 048
     Dates: start: 20091004, end: 20091018
  35. PARACETAMOL [Concomitant]
     Active Substance: ACETAMINOPHEN
     Dosage: UNK
     Route: 048
     Dates: start: 20090712, end: 20090719
  36. PARACETAMOL [Concomitant]
     Active Substance: ACETAMINOPHEN
     Dosage: UNK
     Route: 048
     Dates: start: 20100417, end: 20100819
  37. PARACETAMOL [Concomitant]
     Active Substance: ACETAMINOPHEN
     Dosage: UNK
     Route: 048
     Dates: start: 20100116, end: 20100116
  38. PREDNISOLONE. [Concomitant]
     Active Substance: PREDNISOLONE
     Indication: ASTHMA
     Dosage: UNK
     Route: 048
     Dates: start: 20090807, end: 20090812
  39. HYDROCORTISONE. [Concomitant]
     Active Substance: HYDROCORTISONE
     Indication: PREMEDICATION
     Dosage: UNK
     Route: 042
     Dates: start: 20120520, end: 20120520
  40. ELAPRASE [Suspect]
     Active Substance: IDURSULFASE
     Dosage: 0.61 MILLIGRAM/KILOGRAM
     Route: 042
     Dates: start: 20071016
  41. PARACETAMOL [Concomitant]
     Active Substance: ACETAMINOPHEN
     Dosage: UNK
     Route: 048
     Dates: start: 20100306, end: 20100613
  42. PARACETAMOL [Concomitant]
     Active Substance: ACETAMINOPHEN
     Dosage: UNK
     Route: 048
     Dates: start: 20100213, end: 20100227
  43. EMLA [Concomitant]
     Active Substance: LIDOCAINE\PRILOCAINE
     Indication: PREMEDICATION
     Dosage: UNK
     Route: 061
     Dates: start: 2014
  44. SYMBICORT [Concomitant]
     Active Substance: BUDESONIDE\FORMOTEROL FUMARATE DIHYDRATE
     Indication: ASTHMA
     Dosage: UNK
     Route: 055
     Dates: start: 2005

REACTIONS (3)
  - Eosinophil percentage increased [Recovered/Resolved]
  - Neutrophil count decreased [Not Recovered/Not Resolved]
  - White blood cell count decreased [Recovered/Resolved]

NARRATIVE: CASE EVENT DATE: 20070416
